FAERS Safety Report 13496638 (Version 2)
Quarter: 2017Q2

REPORT INFORMATION
  Report Type: Spontaneous
  Country: US (occurrence: US)
  Receive Date: 20170428
  Receipt Date: 20170428
  Transmission Date: 20170830
  Serious: No
  Sender: FDA-Public Use
  Company Number: US-JAZZ-2017-US-003862

PATIENT
  Age: 41 Year
  Sex: Female

DRUGS (2)
  1. XYREM [Suspect]
     Active Substance: SODIUM OXYBATE
     Indication: HYPERSOMNIA
     Dosage: 2 G BID
     Route: 048
     Dates: start: 201703, end: 201703
  2. XYREM [Suspect]
     Active Substance: SODIUM OXYBATE
     Dosage: 2.25 G BID
     Route: 048
     Dates: start: 201703

REACTIONS (11)
  - Nausea [Unknown]
  - Ocular hyperaemia [Unknown]
  - Tinnitus [Unknown]
  - Condition aggravated [Not Recovered/Not Resolved]
  - Hangover [Unknown]
  - Speech disorder [Unknown]
  - Feeling abnormal [Unknown]
  - Malaise [Not Recovered/Not Resolved]
  - Intentional product use issue [Unknown]
  - Hypoaesthesia [Unknown]
  - Diarrhoea [Unknown]

NARRATIVE: CASE EVENT DATE: 201703
